FAERS Safety Report 24174146 (Version 1)
Quarter: 2024Q3

REPORT INFORMATION
  Report Type: Spontaneous
  Country: FR (occurrence: FR)
  Receive Date: 20240805
  Receipt Date: 20240805
  Transmission Date: 20241016
  Serious: Yes (Hospitalization)
  Sender: MYLAN
  Company Number: None

PATIENT
  Age: 26 Year
  Sex: Female

DRUGS (4)
  1. AZACITIDINE [Suspect]
     Active Substance: AZACITIDINE
     Indication: Acute myeloid leukaemia
     Dosage: 120 MILLIGRAM, QD (75MG/M2 D1 TO D7 (D1=D28))
     Route: 058
     Dates: start: 20240213, end: 20240218
  2. AZACITIDINE [Suspect]
     Active Substance: AZACITIDINE
     Dosage: 120 MILLIGRAM, QD (75MG/M2 D1 TO D7 (D1=D28))
     Route: 058
     Dates: start: 20240311, end: 20240317
  3. SORAFENIB [Suspect]
     Active Substance: SORAFENIB
     Indication: Acute myeloid leukaemia
     Dosage: 200 MILLIGRAM, BID (D1 TO D28, EVERY 12 HOURS)
     Route: 048
     Dates: start: 20240214, end: 20240325
  4. VENETOCLAX [Suspect]
     Active Substance: VENETOCLAX
     Indication: Acute myeloid leukaemia
     Dosage: 200 MILLIGRAM, QD
     Route: 048
     Dates: start: 20240213, end: 20240228

REACTIONS (1)
  - Peripheral sensorimotor neuropathy [Not Recovered/Not Resolved]
